FAERS Safety Report 9629830 (Version 1)
Quarter: 2013Q4

REPORT INFORMATION
  Report Type: Spontaneous
  Country: IR (occurrence: IR)
  Receive Date: 20131017
  Receipt Date: 20131017
  Transmission Date: 20140711
  Serious: Yes (Other)
  Sender: FDA-Public Use
  Company Number: IR-ASTRAZENECA-2013SE74847

PATIENT
  Age: 10 Year
  Sex: Female
  Weight: 30 kg

DRUGS (1)
  1. SYMBICORT [Suspect]
     Indication: ASTHMA
     Dosage: 160 MCG, TWO TIMES A DAY
     Route: 055
     Dates: start: 20131005, end: 20131007

REACTIONS (1)
  - Haemoptysis [Not Recovered/Not Resolved]
